FAERS Safety Report 21988182 (Version 1)
Quarter: 2023Q1

REPORT INFORMATION
  Report Type: Spontaneous
  Country: US (occurrence: US)
  Receive Date: 20230214
  Receipt Date: 20230214
  Transmission Date: 20230417
  Serious: No
  Sender: FDA-Public Use
  Company Number: US-AUROBINDO-AUR-APL-2022-022839

PATIENT
  Age: 66 Year
  Sex: Female
  Weight: 74 kg

DRUGS (5)
  1. LORAZEPAM [Suspect]
     Active Substance: LORAZEPAM
     Indication: Panic attack
     Dosage: 1 DOSAGE FORM, TWO TIMES A DAY
     Route: 065
     Dates: start: 20220603, end: 20220613
  2. LORAZEPAM [Suspect]
     Active Substance: LORAZEPAM
     Dosage: 1.5 DOSAGE FORM, ONCE A DAY
     Route: 065
     Dates: start: 20220613
  3. JANUVIA [Concomitant]
     Active Substance: SITAGLIPTIN PHOSPHATE
     Indication: Diabetes mellitus
     Dosage: UNK
     Route: 065
  4. COZAAR [Concomitant]
     Active Substance: LOSARTAN POTASSIUM
     Indication: Hypertension
     Dosage: UNK
     Route: 065
  5. NIFEDIPINE [Concomitant]
     Active Substance: NIFEDIPINE
     Indication: Blood pressure measurement
     Dosage: UNK
     Route: 065

REACTIONS (5)
  - Feeling jittery [Recovered/Resolved]
  - Tremor [Recovered/Resolved]
  - Illness [Recovered/Resolved]
  - Feeling abnormal [Recovered/Resolved]
  - Wrong technique in product usage process [Unknown]

NARRATIVE: CASE EVENT DATE: 20220607
